FAERS Safety Report 7777182-7 (Version None)
Quarter: 2011Q3

REPORT INFORMATION
  Report Type: 
  Country: None (occurrence: None)
  Receive Date: 20110926
  Receipt Date: 20110916
  Transmission Date: 20111222
  Serious: Yes (Other)
  Sender: FDA-Public Use
  Company Number: CA-JNJFOC-20110908227

PATIENT
  Sex: Female
  Weight: 112 kg

DRUGS (3)
  1. REMICADE [Suspect]
     Indication: CROHN'S DISEASE
     Route: 042
     Dates: start: 20090904
  2. SULFASALAZINE [Concomitant]
  3. REMICADE [Suspect]
     Dosage: 18TH INFUSION
     Route: 042
     Dates: start: 20110916

REACTIONS (5)
  - PERNICIOUS ANAEMIA [None]
  - THROAT TIGHTNESS [None]
  - CHEST DISCOMFORT [None]
  - INFUSION RELATED REACTION [None]
  - FLUSHING [None]
